FAERS Safety Report 8796122 (Version 1)
Quarter: 2012Q4

REPORT INFORMATION
  Report Type: 
  Country: US (occurrence: US)
  Receive Date: 20120919
  Receipt Date: 20120919
  Transmission Date: 20130627
  Serious: No
  Sender: FDA-Public Use
  Company Number: US-B.I. PHARMACEUTICALS,INC./RIDGEFIELD-2012-BP-22604BP

PATIENT
  Sex: Male

DRUGS (5)
  1. PRADAXA [Suspect]
     Indication: CEREBROVASCULAR ACCIDENT PROPHYLAXIS
     Dosage: 300 mg
     Route: 048
     Dates: start: 2011
  2. PRADAXA [Suspect]
     Indication: THROMBOSIS PROPHYLAXIS
  3. PRADAXA [Suspect]
     Indication: ATRIAL FIBRILLATION
  4. METOPROLOL [Concomitant]
     Indication: ATRIAL FIBRILLATION
     Dates: start: 2011
  5. DILTIAZEM [Concomitant]
     Indication: ATRIAL FIBRILLATION
     Dates: start: 2011

REACTIONS (2)
  - Compression fracture [Not Recovered/Not Resolved]
  - Back pain [Not Recovered/Not Resolved]
